FAERS Safety Report 8295446-8 (Version None)
Quarter: 2012Q2

REPORT INFORMATION
  Report Type: 
  Country: None (occurrence: None)
  Receive Date: 20120418
  Receipt Date: 20120411
  Transmission Date: 20120825
  Serious: Yes (Hospitalization)
  Sender: FDA-Public Use
  Company Number: US-ELI_LILLY_AND_COMPANY-US201010001174

PATIENT
  Sex: Female

DRUGS (11)
  1. FORTEO [Suspect]
     Dosage: 20 UG, QD
  2. PREDNISONE TAB [Concomitant]
     Route: 047
  3. FORTEO [Suspect]
     Indication: OSTEOPOROSIS
     Dosage: 20 UG, DAILY (1/D)
  4. METOPROLOL TARTRATE [Concomitant]
     Indication: HYPERTENSION
     Dosage: UNK, BID
  5. VITAMIN D [Concomitant]
     Dosage: UNK
  6. FORTEO [Suspect]
     Dosage: 20 UG, QD
  7. PRAVASTATIN SODIUM [Concomitant]
     Indication: BLOOD CHOLESTEROL
  8. ALVESCO [Concomitant]
  9. CRESTOR [Concomitant]
     Indication: BLOOD CHOLESTEROL INCREASED
     Dosage: UNK, UNKNOWN
  10. FORTEO [Suspect]
     Dosage: 20 UG, QD
  11. CALCIUM CARBONATE [Concomitant]
     Dosage: 600 MG, BID

REACTIONS (10)
  - VITAMIN D DECREASED [None]
  - ASTHENIA [None]
  - HEADACHE [None]
  - BONE MARROW DISORDER [None]
  - BENIGN LUNG NEOPLASM [None]
  - SOMNOLENCE [None]
  - BLOOD CHOLESTEROL INCREASED [None]
  - MIGRAINE [None]
  - DYSPNOEA [None]
  - CATARACT [None]
